FAERS Safety Report 7607995-3 (Version None)
Quarter: 2011Q3

REPORT INFORMATION
  Report Type: 
  Country: None (occurrence: None)
  Receive Date: 20110714
  Receipt Date: 20110707
  Transmission Date: 20111222
  Serious: Yes (Other)
  Sender: FDA-Public Use
  Company Number: US-PFIZER INC-2011153406

PATIENT
  Sex: Female
  Weight: 90.703 kg

DRUGS (15)
  1. LORAZEPAM [Concomitant]
     Dosage: 1 MG, 3X/DAY
  2. NITROSTAT [Concomitant]
     Dosage: THREE TIMES A DAY
  3. LYRICA [Suspect]
     Indication: PAIN
     Dosage: 50 MG, 1X/DAY
     Route: 048
     Dates: start: 20110601, end: 20110707
  4. HYDROCODONE [Concomitant]
     Dosage: TWO TABLETS FOUR TIMES A DAY
  5. CLOXAPEN [Concomitant]
     Dosage: UNK
  6. LANTUS [Concomitant]
     Dosage: ONCE A DAY
  7. NOVOLOG [Concomitant]
     Dosage: UNK
  8. GABAPENTIN [Concomitant]
     Dosage: 1 CAPSULE THREE TIMES A DAY
  9. SIMVASTATIN [Concomitant]
     Dosage: 40 MG, 1X/DAY
  10. PLAVIX [Concomitant]
     Dosage: 75 MG, 1X/DAY
  11. ZANTAC [Concomitant]
     Dosage: 150 MG, 1X/DAY
  12. FUROSEMIDE [Concomitant]
     Dosage: 20 MG, 1X/DAY
  13. METOPROLOL [Concomitant]
     Dosage: 25 MG, 1X/DAY
  14. BENADRYL [Concomitant]
     Dosage: 25 MG
  15. ADVAIR DISKUS 100/50 [Concomitant]
     Dosage: 2 PUFFS ONCE A DAY

REACTIONS (2)
  - PAIN [None]
  - TREMOR [None]
